FAERS Safety Report 15713156 (Version 1)
Quarter: 2018Q4

REPORT INFORMATION
  Report Type: Spontaneous
  Country: US (occurrence: US)
  Receive Date: 20181212
  Receipt Date: 20181212
  Transmission Date: 20190205
  Serious: No
  Sender: FDA-Public Use
  Company Number: US-AMGEN-USASP2018175195

PATIENT

DRUGS (1)
  1. PROLIA [Suspect]
     Active Substance: DENOSUMAB
     Indication: PRODUCT USED FOR UNKNOWN INDICATION
     Dosage: UNK
     Route: 065

REACTIONS (7)
  - Tremor [Unknown]
  - Fatigue [Unknown]
  - Bone pain [Unknown]
  - Alopecia [Unknown]
  - Muscle spasms [Unknown]
  - Myalgia [Unknown]
  - Abdominal pain upper [Unknown]
